FAERS Safety Report 24653778 (Version 2)
Quarter: 2025Q4

REPORT INFORMATION
  Report Type: Spontaneous
  Country: US (occurrence: US)
  Receive Date: 20241122
  Receipt Date: 20251121
  Transmission Date: 20260117
  Serious: No
  Sender: NOVO NORDISK
  Company Number: US-NOVOPROD-1280389

PATIENT
  Age: 74 Year
  Sex: Female

DRUGS (1)
  1. TRESIBA [Suspect]
     Active Substance: INSULIN DEGLUDEC
     Indication: Type 1 diabetes mellitus
     Dosage: 4 U
     Route: 058
     Dates: start: 201804

REACTIONS (8)
  - Dizziness [Recovered/Resolved]
  - Nausea [Recovered/Resolved]
  - Vomiting [Recovered/Resolved]
  - Malaise [Not Recovered/Not Resolved]
  - Food poisoning [Recovered/Resolved]
  - Diabetes mellitus inadequate control [Recovered/Resolved]
  - Device difficult to use [Not Recovered/Not Resolved]
  - Device failure [Unknown]

NARRATIVE: CASE EVENT DATE: 20240801
